FAERS Safety Report 25329243 (Version 1)
Quarter: 2025Q2

REPORT INFORMATION
  Report Type: Spontaneous
  Country: US (occurrence: US)
  Receive Date: 20250519
  Receipt Date: 20250519
  Transmission Date: 20250716
  Serious: Yes (Other)
  Sender: CHEPLAPHARM
  Company Number: US-ASTRAZENECA-202505GLO006385US

PATIENT
  Age: 34 Year
  Sex: Female

DRUGS (3)
  1. QUETIAPINE [Suspect]
     Active Substance: QUETIAPINE
  2. ARIPIPRAZOLE [Suspect]
     Active Substance: ARIPIPRAZOLE
  3. HALOPERIDOL [Suspect]
     Active Substance: HALOPERIDOL

REACTIONS (7)
  - Neuroleptic malignant syndrome [Recovering/Resolving]
  - Malignant catatonia [Recovering/Resolving]
  - Abortion spontaneous [Recovering/Resolving]
  - Rhabdomyolysis [Recovering/Resolving]
  - Pneumonia aspiration [Recovering/Resolving]
  - Thrombophlebitis [Recovering/Resolving]
  - Exposure during pregnancy [Recovered/Resolved]
